FAERS Safety Report 9084914 (Version 1)
Quarter: 2013Q1

REPORT INFORMATION
  Report Type: Report from Study
  Country: US (occurrence: US)
  Receive Date: 20130131
  Receipt Date: 20130131
  Transmission Date: 20140127
  Serious: No
  Sender: FDA-Public Use
  Company Number: US-ABBOTT-12P-163-1001120-00

PATIENT
  Age: 41 Year
  Sex: Male

DRUGS (12)
  1. HUMIRA [Suspect]
     Indication: COLITIS ULCERATIVE
     Dates: start: 20121012, end: 20121012
  2. HUMIRA [Suspect]
  3. LIALDA [Concomitant]
     Indication: PROPHYLAXIS
     Dosage: PILLS
  4. GABAPENTIN [Concomitant]
     Indication: PAIN
     Dosage: AT BEDTIME
  5. DESIPRAMINE [Concomitant]
     Indication: NEURALGIA
     Route: 048
  6. TRAMADOL [Concomitant]
     Indication: PAIN
     Route: 048
  7. LORAZEPAM [Concomitant]
     Indication: INSOMNIA
     Dosage: 0.5-1MG AT BEDTIME
  8. LORAZEPAM [Concomitant]
     Indication: ANXIETY
  9. BUSPIRONE [Concomitant]
     Indication: ANXIETY
     Dosage: IN AM
  10. CELEBREX [Concomitant]
     Indication: PAIN
     Dosage: 1 OR 2 DAILY
     Route: 048
  11. LISINOPRIL [Concomitant]
     Indication: PRODUCT USED FOR UNKNOWN INDICATION
     Route: 048
  12. WELLBUTRIN [Concomitant]
     Indication: DEPRESSION
     Route: 048

REACTIONS (1)
  - Abdominal pain [Recovered/Resolved]
